APPROVED DRUG PRODUCT: NUZOLVENCE
Active Ingredient: ZOLIFLODACIN
Strength: 3GM/PACKET
Dosage Form/Route: FOR SUSPENSION;ORAL
Application: N219491 | Product #001
Applicant: ENTASIS THERAPEUTICS INC
Approved: Dec 12, 2025 | RLD: Yes | RS: Yes | Type: RX

PATENTS:
Patent 9839641 | Expires: Jan 21, 2034
Patent 9540394 | Expires: Jan 21, 2034
Patent 9187495 | Expires: Jan 21, 2034
Patent 9040528 | Expires: Oct 13, 2029
Patent 8889671 | Expires: Jan 21, 2034
Patent 8658641 | Expires: Jun 20, 2030

EXCLUSIVITY:
Code: NCE | Date: Dec 12, 2030
Code: GAIN | Date: Dec 12, 2035